FAERS Safety Report 5349847-8 (Version None)
Quarter: 2007Q2

REPORT INFORMATION
  Report Type: 
  Country: None (occurrence: None)
  Receive Date: 20070607
  Receipt Date: 20070531
  Transmission Date: 20071010
  Serious: Yes (Hospitalization)
  Sender: FDA-Public Use
  Company Number: US-ROXANE LABORATORIES, INC-2007-BP-07389RO

PATIENT
  Sex: Female
  Weight: 55 kg

DRUGS (7)
  1. AZATHIOPRINE TABLETS USP, 50 MG [Suspect]
     Indication: INTERSTITIAL LUNG DISEASE
     Dosage: 50 MG DAILY
     Route: 048
     Dates: start: 20070518, end: 20070526
  2. ACIPHEX [Concomitant]
     Route: 048
  3. CARAFATE [Concomitant]
     Route: 048
  4. COREG [Concomitant]
     Route: 048
  5. LASIX [Concomitant]
     Route: 048
  6. DOXEPIN HCL [Concomitant]
     Route: 048
  7. COUMADIN [Concomitant]
     Dosage: TITRATED TO INR
     Route: 048

REACTIONS (1)
  - ANGIOEDEMA [None]
